FAERS Safety Report 19658504 (Version 1)
Quarter: 2021Q3

REPORT INFORMATION
  Report Type: Spontaneous
  Country: US (occurrence: US)
  Receive Date: 20210804
  Receipt Date: 20210804
  Transmission Date: 20211014
  Serious: No
  Sender: FDA-Public Use
  Company Number: US-009507513-2107USA008134

PATIENT
  Sex: Male

DRUGS (1)
  1. KEYTRUDA [Suspect]
     Active Substance: PEMBROLIZUMAB
     Indication: SKIN SQUAMOUS CELL CARCINOMA METASTATIC
     Dosage: DOSE WAS UNKNOWN, BUT WAS EVERY 3 WEEKS
     Route: 042
     Dates: start: 2016, end: 201706

REACTIONS (4)
  - Fatigue [Recovered/Resolved]
  - Therapeutic response unexpected [Unknown]
  - Weight increased [Recovered/Resolved]
  - Nausea [Recovered/Resolved]
